FAERS Safety Report 5917562-5 (Version None)
Quarter: 2008Q4

REPORT INFORMATION
  Report Type: 
  Country: None (occurrence: None)
  Receive Date: 20081009
  Receipt Date: 20080929
  Transmission Date: 20090506
  Serious: Yes (Other)
  Sender: FDA-Public Use
  Company Number: ADE2008-0326

PATIENT
  Age: 25 Year
  Sex: Male

DRUGS (5)
  1. MIRTAZAPINE [Suspect]
     Indication: DEPRESSION
     Dosage: 30MG- PO
     Route: 048
     Dates: start: 20080908
  2. MIRTAZAPINE [Suspect]
     Indication: DEPRESSION
     Dosage: 125MG- PO
     Route: 048
     Dates: start: 20080901, end: 20080908
  3. WARFARIN SODIUM [Suspect]
  4. BISOPROLOL 10MG [Concomitant]
  5. CITALOPRAM HYDROBROMIDE [Concomitant]

REACTIONS (1)
  - INTERNATIONAL NORMALISED RATIO INCREASED [None]
